FAERS Safety Report 4994876-7 (Version None)
Quarter: 2006Q2

REPORT INFORMATION
  Report Type: 
  Country: None (occurrence: None)
  Receive Date: 20060508
  Receipt Date: 20060425
  Transmission Date: 20061013
  Serious: Yes (Other)
  Sender: FDA-Public Use
  Company Number: US-KINGPHARMUSA00001-K200600516

PATIENT
  Age: 77 Year
  Sex: Female

DRUGS (3)
  1. ALTACE [Suspect]
  2. EPOGEN [Concomitant]
     Indication: RENAL FAILURE
  3. IRON [Concomitant]

REACTIONS (4)
  - APLASTIC ANAEMIA [None]
  - BLOOD IRON DECREASED [None]
  - HAEMOGLOBIN DECREASED [None]
  - TRANSFERRIN SATURATION DECREASED [None]
